FAERS Safety Report 10866010 (Version 1)
Quarter: 2015Q1

REPORT INFORMATION
  Report Type: Spontaneous
  Country: IT (occurrence: IT)
  Receive Date: 20150225
  Receipt Date: 20150225
  Transmission Date: 20150721
  Serious: Yes (Hospitalization)
  Sender: FDA-Public Use
  Company Number: PHHY2015IT019919

PATIENT
  Sex: Male

DRUGS (1)
  1. PAROXETINE [Suspect]
     Active Substance: PAROXETINE\PAROXETINE HYDROCHLORIDE
     Indication: MEDICATION ERROR
     Dosage: 20 MG, ONCE/SINGLE
     Route: 048
     Dates: start: 20150212, end: 20150212

REACTIONS (3)
  - Flushing [Recovered/Resolved]
  - Accidental exposure to product [Recovered/Resolved]
  - Tachycardia [Recovered/Resolved]

NARRATIVE: CASE EVENT DATE: 20150212
